FAERS Safety Report 8299680-2 (Version None)
Quarter: 2012Q2

REPORT INFORMATION
  Report Type: 
  Country: None (occurrence: None)
  Receive Date: 20120419
  Receipt Date: 20120413
  Transmission Date: 20120825
  Serious: Yes (Hospitalization)
  Sender: FDA-Public Use
  Company Number: US-ELI_LILLY_AND_COMPANY-US201204006022

PATIENT
  Sex: Female

DRUGS (3)
  1. FORTEO [Suspect]
     Dosage: 20 UG, QD
     Route: 058
     Dates: start: 20100401
  2. TRAMADOL [Concomitant]
  3. LIPITOR [Concomitant]

REACTIONS (4)
  - ABNORMAL BEHAVIOUR [None]
  - NEUROPATHY PERIPHERAL [None]
  - BACK PAIN [None]
  - HYPOPHAGIA [None]
